FAERS Safety Report 9830511 (Version 2)
Quarter: 2014Q1

REPORT INFORMATION
  Report Type: Spontaneous
  Country: US (occurrence: US)
  Receive Date: 20140120
  Receipt Date: 20140127
  Transmission Date: 20141002
  Serious: Yes (Other)
  Sender: FDA-Public Use
  Company Number: US-BAYER-2014-006584

PATIENT
  Age: 56 Year
  Sex: Male
  Weight: 86 kg

DRUGS (1)
  1. ALKA-SELTZER ORIGINAL [Suspect]
     Indication: ABDOMINAL PAIN UPPER
     Dosage: UNK UNK, PRN
     Route: 048

REACTIONS (8)
  - Drug dependence [None]
  - Haemorrhage [Recovered/Resolved]
  - Haemoptysis [Recovered/Resolved]
  - Drug abuse [None]
  - Dyspnoea [Not Recovered/Not Resolved]
  - Gait disturbance [None]
  - Wrong technique in drug usage process [None]
  - Pruritus [None]
